FAERS Safety Report 5366660-6 (Version None)
Quarter: 2007Q2

REPORT INFORMATION
  Report Type: 
  Country: None (occurrence: None)
  Receive Date: 20070622
  Receipt Date: 20070614
  Transmission Date: 20071010
  Serious: Yes (Other)
  Sender: FDA-Public Use
  Company Number: US-AMGEN-US229433

PATIENT
  Sex: Female

DRUGS (9)
  1. ARANESP [Suspect]
     Indication: ANAEMIA
  2. LASIX [Concomitant]
  3. LIPITOR [Concomitant]
  4. ASPIRIN [Concomitant]
  5. ZETIA [Concomitant]
  6. ALLOPURINOL [Concomitant]
  7. COZAAR [Concomitant]
  8. ACTOS [Concomitant]
  9. UNSPECIFIED MEDICATION [Concomitant]

REACTIONS (1)
  - HAEMOGLOBIN DECREASED [None]
